FAERS Safety Report 14615108 (Version 1)
Quarter: 2018Q1

REPORT INFORMATION
  Report Type: Report from Study
  Country: TN (occurrence: TN)
  Receive Date: 20180308
  Receipt Date: 20180308
  Transmission Date: 20180509
  Serious: Yes (Hospitalization)
  Sender: FDA-Public Use
  Company Number: TN-PFIZER INC-2018091981

PATIENT
  Sex: Female

DRUGS (1)
  1. AMLODIPINE BESILATE [Suspect]
     Active Substance: AMLODIPINE BESYLATE
     Dosage: 297.5 MG, UNK (MEDIAN VALUE OF SUPPOSED INGESTED DOSE)
     Route: 048
     Dates: start: 2016

REACTIONS (2)
  - Toxicity to various agents [Unknown]
  - Shock [Unknown]

NARRATIVE: CASE EVENT DATE: 2016
